FAERS Safety Report 9005120 (Version 2)
Quarter: 2013Q1

REPORT INFORMATION
  Report Type: Report from Study
  Country: CA (occurrence: CA)
  Receive Date: 20130109
  Receipt Date: 20130131
  Transmission Date: 20140127
  Serious: Yes (Other)
  Sender: FDA-Public Use
  Company Number: CA-BRISTOL-MYERS SQUIBB COMPANY-17258955

PATIENT
  Age: 47 Year
  Sex: Male

DRUGS (5)
  1. CETUXIMAB [Suspect]
     Indication: HEAD AND NECK CANCER
     Dosage: DAY 1 OF CYLLE 1 ONLY
     Route: 042
     Dates: start: 20121220, end: 20121220
  2. CISPLATIN [Suspect]
     Indication: HEAD AND NECK CANCER
     Dosage: DAY 1,ONGOING,LAST DOSE ON 20DEC2012
     Route: 042
     Dates: start: 20121220
  3. 5-FLUOROURACIL [Suspect]
     Indication: HEAD AND NECK CANCER
     Dosage: DAY 1-4,ONGOING.LAST DOSE ON 20DEC2012
     Route: 042
     Dates: start: 20121220
  4. NASONEX [Concomitant]
     Indication: ANTITUSSIVE THERAPY
     Dates: start: 20121212, end: 20121220
  5. INNOHEP [Concomitant]
     Indication: ANTICOAGULANT THERAPY
     Dosage: ONGOING; 1DF: 14,000 UNITS?INCREASED FROM 14,000 UNITS TO 18, 0000 UNITS.
     Dates: start: 20121210

REACTIONS (1)
  - Deep vein thrombosis [Recovering/Resolving]
